FAERS Safety Report 8586903-5 (Version None)
Quarter: 2012Q3

REPORT INFORMATION
  Report Type: 
  Country: None (occurrence: None)
  Receive Date: 20120810
  Receipt Date: 20120727
  Transmission Date: 20120928
  Serious: Yes (Other)
  Sender: FDA-Public Use
  Company Number: CHPA2012US016896

PATIENT
  Age: 57 Year
  Sex: Male

DRUGS (1)
  1. NUPERCAINAL [Suspect]
     Indication: ANAL ABSCESS
     Dosage: 3 TIMES PER DAY WHEN NEEDED
     Route: 061

REACTIONS (4)
  - GAIT DISTURBANCE [None]
  - IMPAIRED WORK ABILITY [None]
  - PAIN [None]
  - OFF LABEL USE [None]
